FAERS Safety Report 11959940 (Version 1)
Quarter: 2016Q1

REPORT INFORMATION
  Report Type: Report from Study
  Country: US (occurrence: US)
  Receive Date: 20160126
  Receipt Date: 20160126
  Transmission Date: 20160526
  Serious: Yes (Hospitalization)
  Sender: FDA-Public Use
  Company Number: US-ABBVIE-15K-163-1357413-00

PATIENT
  Age: 56 Year
  Sex: Female
  Weight: 94.43 kg

DRUGS (4)
  1. HUMIRA [Suspect]
     Active Substance: ADALIMUMAB
     Dosage: LOADING DOSE
     Route: 065
     Dates: start: 2014, end: 2014
  2. HUMIRA [Suspect]
     Active Substance: ADALIMUMAB
     Route: 065
     Dates: start: 2014
  3. HUMIRA [Suspect]
     Active Substance: ADALIMUMAB
     Indication: CROHN^S DISEASE
     Route: 065
     Dates: start: 20131017
  4. AZATHIOPRINE. [Concomitant]
     Active Substance: AZATHIOPRINE
     Indication: PRODUCT USED FOR UNKNOWN INDICATION
     Dosage: EVERY NIGHT
     Route: 048

REACTIONS (16)
  - Palpitations [Recovered/Resolved]
  - Rash pustular [Recovered/Resolved]
  - Purulent discharge [Recovered/Resolved]
  - Throat irritation [Not Recovered/Not Resolved]
  - Staphylococcal infection [Unknown]
  - Carbuncle [Unknown]
  - Oropharyngeal pain [Not Recovered/Not Resolved]
  - Scar [Unknown]
  - Drug ineffective [Not Recovered/Not Resolved]
  - Abdominal pain [Unknown]
  - Rash pustular [Recovered/Resolved]
  - Cough [Unknown]
  - Abdominal distension [Unknown]
  - Purulent discharge [Recovered/Resolved]
  - Flatulence [Unknown]
  - Rash pustular [Unknown]

NARRATIVE: CASE EVENT DATE: 20131017
